FAERS Safety Report 7361074-1 (Version None)
Quarter: 2011Q1

REPORT INFORMATION
  Report Type: 
  Country: None (occurrence: None)
  Receive Date: 20110318
  Receipt Date: 20110217
  Transmission Date: 20110831
  Serious: No
  Sender: FDA-Public Use
  Company Number: US-BAYER-2011-016758

PATIENT
  Sex: Male
  Weight: 16 kg

DRUGS (4)
  1. AMOXICILLIN [Concomitant]
  2. ALEVE (CAPLET) [Suspect]
     Indication: ACCIDENTAL DRUG INTAKE BY CHILD
     Dosage: 220 MG, ONCE, BOTTLE COUNT 24S
     Route: 048
     Dates: start: 20110217, end: 20110217
  3. UNCODEABLE ^UNCLASSIFIABLE^ [Concomitant]
  4. UNCODEABLE ^UNCLASSIFIABLE^ [Concomitant]

REACTIONS (1)
  - NO ADVERSE EVENT [None]
